FAERS Safety Report 11224335 (Version 1)
Quarter: 2015Q2

REPORT INFORMATION
  Report Type: Spontaneous
  Country: US (occurrence: None)
  Receive Date: 20150626
  Receipt Date: 20150626
  Transmission Date: 20150821
  Serious: Yes (Hospitalization)
  Sender: FDA-Public Use
  Company Number: None

PATIENT
  Age: 59 Year
  Sex: Female
  Weight: 75.75 kg

DRUGS (17)
  1. HARVONI [Suspect]
     Active Substance: LEDIPASVIR\SOFOSBUVIR
     Indication: HEPATITIS C
     Route: 048
     Dates: start: 20150210
  2. KLONOPIN [Concomitant]
     Active Substance: CLONAZEPAM
  3. FISH OIL/OMEGA 3 [Concomitant]
  4. PHENERGAN [Concomitant]
     Active Substance: PROMETHAZINE HYDROCHLORIDE
  5. HYDROCODONE/ACETAMINOPHEN [Concomitant]
     Active Substance: ACETAMINOPHEN\HYDROCODONE
  6. NARCAN [Concomitant]
     Active Substance: NALOXONE HYDROCHLORIDE
  7. OXYCONTIN [Concomitant]
     Active Substance: OXYCODONE HYDROCHLORIDE
  8. LOVENOX [Concomitant]
     Active Substance: ENOXAPARIN SODIUM
  9. PERDIEM [Concomitant]
     Active Substance: SENNOSIDES
  10. FIBERCON [Concomitant]
     Active Substance: CALCIUM POLYCARBOPHIL
  11. ASPIRIN. [Concomitant]
     Active Substance: ASPIRIN
  12. METOPROLOL [Concomitant]
     Active Substance: METOPROLOL
  13. XANAX [Concomitant]
     Active Substance: ALPRAZOLAM
  14. HUMALOG [Concomitant]
     Active Substance: INSULIN LISPRO
  15. ZOFRAN [Concomitant]
     Active Substance: ONDANSETRON HYDROCHLORIDE
  16. INSULIN GLARGINE [Concomitant]
     Active Substance: INSULIN GLARGINE
  17. MORPHINE [Concomitant]
     Active Substance: MORPHINE

REACTIONS (2)
  - Palpitations [None]
  - Troponin increased [None]

NARRATIVE: CASE EVENT DATE: 20150520
